FAERS Safety Report 5680037-5 (Version None)
Quarter: 2008Q1

REPORT INFORMATION
  Report Type: 
  Country: None (occurrence: None)
  Receive Date: 20080325
  Receipt Date: 20080325
  Transmission Date: 20080703
  Serious: No
  Sender: FDA-Public Use
  Company Number: None

PATIENT
  Sex: Male
  Weight: 73.9363 kg

DRUGS (1)
  1. MIRAPEX [Suspect]
     Indication: RESTLESS LEGS SYNDROME
     Dosage: .25 MG DAILY ORAL
     Route: 048
     Dates: start: 20071101, end: 20071201

REACTIONS (3)
  - DRUG DEPENDENCE [None]
  - ILL-DEFINED DISORDER [None]
  - RESTLESSNESS [None]
